FAERS Safety Report 7499289-4 (Version None)
Quarter: 2011Q2

REPORT INFORMATION
  Report Type: 
  Country: None (occurrence: None)
  Receive Date: 20110524
  Receipt Date: 20110513
  Transmission Date: 20111010
  Serious: Yes (Hospitalization)
  Sender: FDA-Public Use
  Company Number: US-AMGEN-USASP2011022285

PATIENT
  Age: 39 Year
  Sex: Female

DRUGS (6)
  1. ENBREL [Suspect]
     Indication: RHEUMATOID ARTHRITIS
     Dosage: UNK
     Dates: start: 20101015, end: 20101101
  2. METHOTREXATE [Concomitant]
     Dosage: 7.5 MG, QWK
  3. CELEBREX [Concomitant]
     Dosage: 200 MG, Q12H
  4. TRAMADOL HCL [Concomitant]
     Dosage: 250 MG, QD
  5. AMBIEN [Concomitant]
     Dosage: 10 MG, QD
  6. CONTRACEPTIVES [Concomitant]
     Dosage: UNK UNK, QD

REACTIONS (11)
  - INJECTION SITE ERYTHEMA [None]
  - INJECTION SITE PRURITUS [None]
  - LYMPH NODE PAIN [None]
  - INJECTION SITE INDURATION [None]
  - NAUSEA [None]
  - INJECTION SITE MASS [None]
  - INJECTION SITE PAIN [None]
  - CELLULITIS [None]
  - INJECTION SITE REACTION [None]
  - INJECTION SITE WARMTH [None]
  - PAIN IN EXTREMITY [None]
